APPROVED DRUG PRODUCT: CIPROFLOXACIN
Active Ingredient: CIPROFLOXACIN
Strength: 250MG/5ML
Dosage Form/Route: FOR SUSPENSION;ORAL
Application: A200563 | Product #001 | TE Code: AB
Applicant: CHARTWELL LIFE MOLECULES LLC
Approved: Mar 5, 2014 | RLD: No | RS: No | Type: RX